FAERS Safety Report 22207393 (Version 1)
Quarter: 2023Q2

REPORT INFORMATION
  Report Type: Spontaneous
  Country: PL (occurrence: PL)
  Receive Date: 20230413
  Receipt Date: 20230413
  Transmission Date: 20230721
  Serious: Yes (Other)
  Sender: FDA-Public Use
  Company Number: None

PATIENT
  Age: 48 Year
  Sex: Female
  Weight: 59 kg

DRUGS (2)
  1. DOXORUBICIN [Suspect]
     Active Substance: DOXORUBICIN
     Indication: Product used for unknown indication
     Dosage: DRUG NOT USED IN THE PAST
     Route: 065
     Dates: start: 20230213, end: 20230213
  2. CYCLOPHOSPHAMIDE [Suspect]
     Active Substance: CYCLOPHOSPHAMIDE
     Indication: Product used for unknown indication
     Dosage: DRUG NOT USED IN THE PAST
     Route: 065
     Dates: start: 20230213, end: 20230213

REACTIONS (1)
  - Lymphopenia [Recovered/Resolved with Sequelae]

NARRATIVE: CASE EVENT DATE: 20230306
